FAERS Safety Report 17680755 (Version 7)
Quarter: 2021Q3

REPORT INFORMATION
  Report Type: Report from Study
  Country: US (occurrence: US)
  Receive Date: 20200417
  Receipt Date: 20210810
  Transmission Date: 20211014
  Serious: Yes (Hospitalization, Other)
  Sender: FDA-Public Use
  Company Number: NVSC2020US103987

PATIENT
  Age: 72 Year
  Sex: Male

DRUGS (4)
  1. TORSEMIDE. [Concomitant]
     Active Substance: TORSEMIDE
     Indication: PRODUCT USED FOR UNKNOWN INDICATION
     Dosage: UNK
     Route: 065
  2. ENTRESTO [Suspect]
     Active Substance: SACUBITRIL\VALSARTAN
     Indication: PRODUCT USED FOR UNKNOWN INDICATION
     Dosage: 1 DF, BID (24/26 MG)
     Route: 048
     Dates: start: 20200411
  3. LASIX [Concomitant]
     Active Substance: FUROSEMIDE
     Indication: ATRIAL FIBRILLATION
     Dosage: UNK
     Route: 065
  4. MIDODRINE [Concomitant]
     Active Substance: MIDODRINE
     Indication: PRODUCT USED FOR UNKNOWN INDICATION
     Dosage: UNK
     Route: 065

REACTIONS (10)
  - Renal failure [Recovering/Resolving]
  - Fear [Unknown]
  - Hypotension [Recovering/Resolving]
  - Memory impairment [Unknown]
  - Rhinorrhoea [Unknown]
  - Weight increased [Not Recovered/Not Resolved]
  - Dizziness [Recovering/Resolving]
  - Back injury [Recovered/Resolved]
  - Musculoskeletal discomfort [Unknown]
  - Fluid imbalance [Unknown]

NARRATIVE: CASE EVENT DATE: 202004
